FAERS Safety Report 6168258-9 (Version None)
Quarter: 2009Q2

REPORT INFORMATION
  Report Type: 
  Country: None (occurrence: None)
  Receive Date: 20090423
  Receipt Date: 20090423
  Transmission Date: 20091009
  Serious: Yes (Hospitalization)
  Sender: FDA-Public Use
  Company Number: None

PATIENT
  Age: 78 Year
  Sex: Male
  Weight: 90.7194 kg

DRUGS (1)
  1. NITROQUICK 0.3MG ETHEX ETHEX [Suspect]
     Dosage: 1 TABLET 1
     Dates: start: 20080411, end: 20090418

REACTIONS (1)
  - SWOLLEN TONGUE [None]
